FAERS Safety Report 19945982 (Version 1)
Quarter: 2021Q4

REPORT INFORMATION
  Report Type: Spontaneous
  Country: None (occurrence: US)
  Receive Date: 20211012
  Receipt Date: 20211012
  Transmission Date: 20220303
  Serious: Yes (Other)
  Sender: FDA-Public Use
  Company Number: US-ACELLA PHARMACEUTICALS, LLC-2120443

PATIENT
  Age: 51 Year
  Sex: Female

DRUGS (2)
  1. PHENYTOIN SODIUM [Suspect]
     Active Substance: PHENYTOIN SODIUM
     Indication: Status epilepticus
     Route: 065
  2. noradrenaline infusion [Concomitant]
     Route: 065

REACTIONS (1)
  - Stress cardiomyopathy [Recovered/Resolved]
